FAERS Safety Report 10458805 (Version 1)
Quarter: 2014Q3

REPORT INFORMATION
  Report Type: Spontaneous
  Country: US (occurrence: None)
  Receive Date: 20140916
  Receipt Date: 20140916
  Transmission Date: 20150326
  Serious: No
  Sender: FDA-Public Use
  Company Number: None

PATIENT
  Age: 90 Year
  Sex: Female
  Weight: 66.68 kg

DRUGS (7)
  1. FLUTICASONE [Suspect]
     Active Substance: FLUTICASONE\FLUTICASONE PROPIONATE
     Indication: UPPER-AIRWAY COUGH SYNDROME
     Dosage: 50 MCG, ONE SPRAY ECH NOSTRIL, ONCE DAILY, NASAL SPRAY
     Route: 045
     Dates: start: 20140902, end: 20140905
  2. VITAMINS [Suspect]
     Active Substance: VITAMINS
  3. METAPROPANOL [Concomitant]
  4. ARMOUR THYROID [Concomitant]
     Active Substance: THYROID, PORCINE\THYROID, UNSPECIFIED
  5. FLUTICASONE [Suspect]
     Active Substance: FLUTICASONE\FLUTICASONE PROPIONATE
     Indication: SINUS DISORDER
     Dosage: 50 MCG, ONE SPRAY ECH NOSTRIL, ONCE DAILY, NASAL SPRAY
     Route: 045
     Dates: start: 20140902, end: 20140905
  6. CALCIUM [Concomitant]
     Active Substance: CALCIUM
  7. MAGNESIUM [Concomitant]
     Active Substance: MAGNESIUM

REACTIONS (5)
  - Dysphonia [None]
  - Swollen tongue [None]
  - Tongue dry [None]
  - Dizziness [None]
  - Ageusia [None]

NARRATIVE: CASE EVENT DATE: 20140905
